FAERS Safety Report 10607453 (Version 2)
Quarter: 2014Q4

REPORT INFORMATION
  Report Type: Report from Study
  Country: ES (occurrence: ES)
  Receive Date: 20141125
  Receipt Date: 20141125
  Transmission Date: 20150529
  Serious: Yes (Hospitalization)
  Sender: FDA-Public Use
  Company Number: ES-ABBVIE-12P-144-0960699-00

PATIENT
  Sex: Male

DRUGS (12)
  1. HUMIRA [Suspect]
     Active Substance: ADALIMUMAB
     Indication: CROHN^S DISEASE
     Route: 058
     Dates: start: 20071115, end: 20071115
  2. HUMIRA [Suspect]
     Active Substance: ADALIMUMAB
     Route: 058
  3. OMEPRAZOL [Concomitant]
     Active Substance: OMEPRAZOLE
     Indication: PROPHYLAXIS
  4. SALAZOPIRINA [Concomitant]
     Indication: PROPHYLAXIS
     Dates: start: 20080801
  5. SALAZOPIRINA [Concomitant]
     Indication: CROHN^S DISEASE
     Dosage: DURATION:  10 MTHS
  6. OMEPRAZOL [Concomitant]
     Active Substance: OMEPRAZOLE
     Indication: GASTRIC DISORDER
     Dates: start: 2006
  7. ATORVASTATINA [Concomitant]
     Active Substance: ATORVASTATIN
     Indication: MYOCARDIAL INFARCTION
     Dates: start: 2006
  8. AZATHIOPRINE. [Concomitant]
     Active Substance: AZATHIOPRINE
     Indication: CROHN^S DISEASE
     Dosage: DURATION: 7 YRS, 7 MTHS
  9. RAMIPRIL. [Concomitant]
     Active Substance: RAMIPRIL
     Indication: MYOCARDIAL INFARCTION
     Dates: start: 2009
  10. CLOPIDOGREL [Concomitant]
     Active Substance: CLOPIDOGREL BISULFATE
     Indication: MYOCARDIAL INFARCTION
     Dates: start: 2006
  11. HUMIRA [Suspect]
     Active Substance: ADALIMUMAB
     Dosage: WEEK 2
     Route: 058
  12. FUROSEMIDA [Concomitant]
     Active Substance: FUROSEMIDE
     Indication: MYOCARDIAL INFARCTION
     Dates: start: 2006

REACTIONS (1)
  - Fistula discharge [Unknown]

NARRATIVE: CASE EVENT DATE: 20120125
